FAERS Safety Report 20867524 (Version 1)
Quarter: 2022Q2

REPORT INFORMATION
  Report Type: Spontaneous
  Country: US (occurrence: US)
  Receive Date: 20220524
  Receipt Date: 20220524
  Transmission Date: 20220721
  Serious: No
  Sender: FDA-Public Use
  Company Number: US-CHIESI-2022CHF01451

PATIENT
  Sex: Female

DRUGS (2)
  1. BRONCHITOL [Suspect]
     Active Substance: MANNITOL
     Indication: Product used for unknown indication
  2. BRONCHITOL [Suspect]
     Active Substance: MANNITOL
     Indication: Product used for unknown indication

REACTIONS (1)
  - Hypersensitivity [Unknown]
